FAERS Safety Report 5078214-X (Version None)
Quarter: 2006Q3

REPORT INFORMATION
  Report Type: 
  Country: None (occurrence: None)
  Receive Date: 20060811
  Receipt Date: 20060804
  Transmission Date: 20061208
  Serious: Yes (Other)
  Sender: FDA-Public Use
  Company Number: ES-BRISTOL-MYERS SQUIBB COMPANY-13468194

PATIENT

DRUGS (1)
  1. EFAVIRENZ [Suspect]

REACTIONS (5)
  - DRUG LEVEL DECREASED [None]
  - DRUG LEVEL INCREASED [None]
  - HEPATOTOXICITY [None]
  - NEUROLOGICAL SYMPTOM [None]
  - RASH [None]
